FAERS Safety Report 10698414 (Version 4)
Quarter: 2015Q2

REPORT INFORMATION
  Report Type: Spontaneous
  Country: US (occurrence: US)
  Receive Date: 20150108
  Receipt Date: 20150610
  Transmission Date: 20150821
  Serious: Yes (Hospitalization)
  Sender: FDA-Public Use
  Company Number: US-BAYER-2015-001652

PATIENT
  Age: 22 Year
  Sex: Female
  Weight: 60.32 kg

DRUGS (3)
  1. MIRENA [Suspect]
     Active Substance: LEVONORGESTREL
     Indication: CONTRACEPTION
     Dosage: 20 MCG/24HR, CONT
     Route: 015
     Dates: start: 201204, end: 20130211
  2. PRENATAL VITAMINS [Concomitant]
     Active Substance: VITAMINS
     Dosage: UNK
  3. IRON [FERROUS SULFATE] [Concomitant]
     Dosage: UNK

REACTIONS (6)
  - Pain [None]
  - Device dislocation [None]
  - Pelvic adhesions [None]
  - Uterine perforation [None]
  - Vaginal haemorrhage [None]
  - Injury [None]

NARRATIVE: CASE EVENT DATE: 201210
